FAERS Safety Report 10621729 (Version 1)
Quarter: 2014Q4

REPORT INFORMATION
  Report Type: Report from Study
  Country: US (occurrence: US)
  Receive Date: 20141203
  Receipt Date: 20141203
  Transmission Date: 20150529
  Serious: Yes (Other)
  Sender: FDA-Public Use
  Company Number: PHEH2014US023787

PATIENT
  Sex: Male

DRUGS (1)
  1. TOBI [Suspect]
     Active Substance: TOBRAMYCIN
     Indication: LUNG DISORDER
     Dosage: 300 MG, BID
     Route: 055

REACTIONS (4)
  - Short-bowel syndrome [Unknown]
  - Lung disorder [Unknown]
  - Mitochondrial enzyme deficiency [Unknown]
  - Drug administered to patient of inappropriate age [Unknown]
